FAERS Safety Report 9891623 (Version 3)
Quarter: 2014Q1

REPORT INFORMATION
  Report Type: Spontaneous
  Country: DE (occurrence: DE)
  Receive Date: 20140212
  Receipt Date: 20140325
  Transmission Date: 20141002
  Serious: No
  Sender: FDA-Public Use
  Company Number: DE-PFIZER INC-2014036472

PATIENT
  Sex: Male
  Weight: 116 kg

DRUGS (1)
  1. SILDENAFIL PFIZER [Suspect]
     Dosage: 100 MG, UNK
     Route: 048

REACTIONS (1)
  - Hypoacusis [Not Recovered/Not Resolved]
